FAERS Safety Report 6564837-5 (Version None)
Quarter: 2010Q1

REPORT INFORMATION
  Report Type: 
  Country: None (occurrence: None)
  Receive Date: 20100201
  Receipt Date: 20100120
  Transmission Date: 20100710
  Serious: Yes (Life-Threatening)
  Sender: FDA-Public Use
  Company Number: JP-PFIZER INC-2009191556

PATIENT
  Sex: Female
  Weight: 47 kg

DRUGS (9)
  1. SOLU-MEDROL [Suspect]
     Indication: PROPHYLAXIS
     Dosage: 1 G/DAY
     Route: 042
     Dates: start: 20090313, end: 20090313
  2. TRANSAMIN [Suspect]
  3. MUSCULAX [Suspect]
  4. UNASYN [Concomitant]
     Indication: CIRCULATORY COLLAPSE
     Dosage: UNK
     Route: 042
     Dates: start: 20090313, end: 20090313
  5. DORMICUM [Concomitant]
     Dosage: UNK
     Route: 042
     Dates: start: 20090313, end: 20090313
  6. SEVOFRANE [Concomitant]
     Dosage: UNK
     Route: 025
     Dates: start: 20090313, end: 20090313
  7. ULTIVA [Concomitant]
     Dosage: UNK
     Route: 042
     Dates: start: 20090313, end: 20090313
  8. PROPOFOL [Concomitant]
     Dosage: UNK
     Route: 042
     Dates: start: 20090313, end: 20090313
  9. HESPANDER [Concomitant]
     Dosage: UNK
     Route: 042
     Dates: start: 20090313, end: 20090313

REACTIONS (1)
  - ANAPHYLACTIC SHOCK [None]
